FAERS Safety Report 8008772-4 (Version None)
Quarter: 2011Q4

REPORT INFORMATION
  Report Type: 
  Country: None (occurrence: None)
  Receive Date: 20111227
  Receipt Date: 20111219
  Transmission Date: 20120403
  Serious: Yes (Other)
  Sender: FDA-Public Use
  Company Number: CHPA2011US018385

PATIENT
  Age: 59 Year
  Sex: Female

DRUGS (2)
  1. GAS-X EXTRA STRENGTH SOFTGELS [Suspect]
     Indication: ABDOMINAL DISTENSION
     Dosage: 5-6 SOFTGELS AT A TIME QD
     Route: 048
     Dates: start: 19990101, end: 20111201
  2. GAS-X UNKNOWN [Suspect]
     Indication: ABDOMINAL DISTENSION
     Dosage: 5-6 PILLS AT A TIME, QD
     Route: 048
     Dates: start: 19990101, end: 20111201

REACTIONS (4)
  - OVERDOSE [None]
  - INCORRECT DRUG ADMINISTRATION DURATION [None]
  - PANCREATIC DISORDER [None]
  - DRUG INEFFECTIVE [None]
